FAERS Safety Report 10759475 (Version 1)
Quarter: 2015Q1

REPORT INFORMATION
  Report Type: Spontaneous
  Country: US (occurrence: US)
  Receive Date: 20150203
  Receipt Date: 20150203
  Transmission Date: 20150721
  Serious: Yes (Other)
  Sender: FDA-Public Use
  Company Number: US-GLAXOSMITHKLINE-US2014GSK048875

PATIENT
  Sex: Female

DRUGS (3)
  1. HYCAMTIN [Suspect]
     Active Substance: TOPOTECAN HYDROCHLORIDE
     Dosage: 3 MG, CYC
     Route: 065
  2. HYCAMTIN [Suspect]
     Active Substance: TOPOTECAN HYDROCHLORIDE
     Indication: TRACHEAL CANCER
     Dosage: 3 MG, QD
     Route: 065
     Dates: start: 20141119
  3. PENICILLIN VK [Suspect]
     Active Substance: PENICILLIN V POTASSIUM
     Indication: PRODUCT USED FOR UNKNOWN INDICATION
     Dosage: UNK, U
     Route: 065

REACTIONS (3)
  - Cough [Unknown]
  - Tooth abscess [Unknown]
  - Abdominal discomfort [Unknown]
